FAERS Safety Report 20711380 (Version 1)
Quarter: 2022Q2

REPORT INFORMATION
  Report Type: Spontaneous
  Country: US (occurrence: US)
  Receive Date: 20220414
  Receipt Date: 20220414
  Transmission Date: 20220721
  Serious: No
  Sender: FDA-Public Use
  Company Number: US-ChurchDwight-2022-CDW-00025

PATIENT
  Age: 76 Year
  Sex: Female

DRUGS (1)
  1. ZICAM (HOMEOPATHICS) [Suspect]
     Active Substance: HOMEOPATHICS
     Indication: Nasopharyngitis
     Dosage: 2 TABLETS, FREQUENCY 2 (USED 2 DOSES A FEW HOURS APART)
     Route: 048
     Dates: start: 202203, end: 202203

REACTIONS (1)
  - Ageusia [Not Recovered/Not Resolved]

NARRATIVE: CASE EVENT DATE: 20220301
